FAERS Safety Report 5810717-X (Version None)
Quarter: 2008Q3

REPORT INFORMATION
  Report Type: 
  Country: None (occurrence: None)
  Receive Date: 20080710
  Receipt Date: 20080625
  Transmission Date: 20090109
  Serious: Yes (Hospitalization)
  Sender: FDA-Public Use
  Company Number: 2008BI008530

PATIENT
  Age: 61 Year
  Sex: Female
  Weight: 65.7716 kg

DRUGS (9)
  1. AVONEX [Suspect]
     Indication: MULTIPLE SCLEROSIS
     Dosage: 30 UG; QW; IM, 30 UG; QW; IM, 30 UG; QW; IM
     Route: 030
     Dates: start: 20030721, end: 20030801
  2. AVONEX [Suspect]
     Indication: MULTIPLE SCLEROSIS
     Dosage: 30 UG; QW; IM, 30 UG; QW; IM, 30 UG; QW; IM
     Route: 030
     Dates: start: 20030801, end: 20080215
  3. FOSAMAX [Concomitant]
  4. TIZANIDINE HCL [Concomitant]
  5. AMITRIPTYLINE HCL [Concomitant]
  6. SOMA [Concomitant]
  7. NAPROXIN [Concomitant]
  8. TRAMADOL HCL [Concomitant]
  9. LYRICA [Concomitant]

REACTIONS (2)
  - PNEUMONIA [None]
  - THROMBOSIS [None]
